FAERS Safety Report 7242252-9 (Version None)
Quarter: 2011Q1

REPORT INFORMATION
  Report Type: 
  Country: None (occurrence: None)
  Receive Date: 20110124
  Receipt Date: 20110118
  Transmission Date: 20110831
  Serious: Yes (Death)
  Sender: FDA-Public Use
  Company Number: JP-SANOFI-AVENTIS-2011SA003306

PATIENT
  Age: 83 Year
  Sex: Female
  Weight: 52 kg

DRUGS (15)
  1. WARFARIN [Concomitant]
     Route: 048
     Dates: end: 20100711
  2. ARTIST [Concomitant]
     Route: 048
     Dates: end: 20100711
  3. HEPARIN SODIUM [Concomitant]
     Dosage: CONTINUOUS DOSING
     Route: 041
     Dates: start: 20100711, end: 20100711
  4. HANP [Concomitant]
     Route: 041
     Dates: start: 20100711, end: 20100711
  5. ASPIRIN [Concomitant]
     Route: 048
     Dates: end: 20100710
  6. ASPIRIN [Concomitant]
     Route: 048
     Dates: start: 20100711, end: 20100711
  7. SIGMART [Concomitant]
     Route: 065
     Dates: start: 20100711, end: 20100711
  8. GRAMALIL [Concomitant]
     Route: 048
     Dates: end: 20100711
  9. RIZE [Concomitant]
     Route: 048
     Dates: end: 20100711
  10. ITAVASTATIN [Concomitant]
     Route: 048
     Dates: start: 20100711, end: 20100711
  11. ZYLORIC ^FRESENIUS^ [Concomitant]
     Route: 048
     Dates: end: 20100711
  12. PARIET [Concomitant]
     Route: 048
     Dates: start: 20100711, end: 20100711
  13. MAGNESIUM OXIDE [Concomitant]
     Route: 048
     Dates: start: 20100711, end: 20100711
  14. PLAVIX [Suspect]
     Dates: start: 20100711, end: 20100711
  15. OLMETEC [Concomitant]
     Route: 048
     Dates: end: 20100711

REACTIONS (1)
  - CARDIAC ARREST [None]
